FAERS Safety Report 20075212 (Version 6)
Quarter: 2022Q1

REPORT INFORMATION
  Report Type: Report from Study
  Country: GB (occurrence: GB)
  Receive Date: 20211116
  Receipt Date: 20220228
  Transmission Date: 20220423
  Serious: Yes (Hospitalization)
  Sender: FDA-Public Use
  Company Number: GB-NOVARTISPH-NVSC2021GB256520

PATIENT
  Age: 72 Year
  Sex: Male

DRUGS (3)
  1. SANDOSTATIN LAR DEPOT [Suspect]
     Active Substance: OCTREOTIDE ACETATE
     Indication: Neuroendocrine tumour
     Dosage: 30 MG, Q3W
     Route: 030
  2. SANDOSTATIN LAR DEPOT [Suspect]
     Active Substance: OCTREOTIDE ACETATE
  3. SANDOSTATIN LAR DEPOT [Suspect]
     Active Substance: OCTREOTIDE ACETATE

REACTIONS (7)
  - Pneumonitis [Unknown]
  - Dyspnoea [Unknown]
  - Pain [Unknown]
  - Pulmonary oedema [Recovered/Resolved]
  - Diarrhoea [Unknown]
  - Limb discomfort [Unknown]
  - Inappropriate schedule of product administration [Unknown]
